FAERS Safety Report 9700170 (Version 1)
Quarter: 2013Q4

REPORT INFORMATION
  Report Type: Spontaneous
  Country: US (occurrence: None)
  Receive Date: 20131118
  Receipt Date: 20131118
  Transmission Date: 20140711
  Serious: Yes (Hospitalization)
  Sender: FDA-Public Use
  Company Number: 2013P1020871

PATIENT
  Age: 57 Year
  Sex: Female

DRUGS (4)
  1. CITALOPRAM [Suspect]
     Indication: DEPRESSION
  2. BUPRENORPHINE [Suspect]
  3. BUPROPION [Concomitant]
  4. MIRTAZAPINE [Concomitant]

REACTIONS (7)
  - Convulsion [None]
  - Unresponsive to stimuli [None]
  - Cerebral infarction [None]
  - Serotonin syndrome [None]
  - Ischaemic stroke [None]
  - Cerebral vasoconstriction [None]
  - Haemodynamic instability [None]
